FAERS Safety Report 23419490 (Version 3)
Quarter: 2024Q3

REPORT INFORMATION
  Report Type: Spontaneous
  Country: US (occurrence: US)
  Receive Date: 20240118
  Receipt Date: 20240917
  Transmission Date: 20241017
  Serious: Yes (Other)
  Sender: ENDO
  Company Number: US-ENDO PHARMACEUTICALS INC-2023-005526

PATIENT
  Sex: Male

DRUGS (5)
  1. HYDROCODONE BITARTRATE AND ACETAMINOPHEN [Suspect]
     Active Substance: ACETAMINOPHEN\HYDROCODONE BITARTRATE
     Indication: Gun shot wound
     Dosage: UNK UNKNOWN, UNKNOWN
     Route: 065
     Dates: start: 2013
  2. ACETAMINOPHEN\OXYCODONE HYDROCHLORIDE [Suspect]
     Active Substance: ACETAMINOPHEN\OXYCODONE HYDROCHLORIDE
     Indication: Gun shot wound
     Dosage: UNK UNKNOWN, UNKNOWN
     Route: 065
     Dates: start: 2013
  3. PERCOCET [Suspect]
     Active Substance: ACETAMINOPHEN\OXYCODONE HYDROCHLORIDE
     Indication: Gun shot wound
     Dosage: UNK UNKNOWN, UNKNOWN
     Route: 065
     Dates: start: 2013
  4. HYDROCODONE [Suspect]
     Active Substance: HYDROCODONE
     Indication: Gun shot wound
     Dosage: UNK UNKNOWN, UNKNOWN
     Route: 065
     Dates: start: 2013
  5. OXYCODONE [Suspect]
     Active Substance: OXYCODONE
     Indication: Gun shot wound
     Dosage: UNK UNKNOWN, UNKNOWN
     Route: 065
     Dates: start: 2013

REACTIONS (2)
  - Dependence [Unknown]
  - Overdose [Unknown]
